FAERS Safety Report 6104481-7 (Version None)
Quarter: 2009Q1

REPORT INFORMATION
  Report Type: 
  Country: None (occurrence: None)
  Receive Date: 20090227
  Receipt Date: 20080620
  Transmission Date: 20090719
  Serious: Yes (Hospitalization, Other)
  Sender: FDA-Public Use
  Company Number: RB-1709-2008

PATIENT
  Sex: Male

DRUGS (3)
  1. SUBOXONE [Suspect]
     Indication: DRUG DEPENDENCE
     Dosage: 2 MG QD TRANSPLACENTAL
     Route: 064
     Dates: end: 20070101
  2. SUBUTEX [Suspect]
     Indication: DRUG DEPENDENCE
     Dosage: 2 MG QD TRANSPLACENTAL;  2 MG QD TRANSMAMMARY
     Route: 064
     Dates: end: 20080301
  3. SUBUTEX [Suspect]
     Indication: DRUG DEPENDENCE
     Dosage: 2 MG QD TRANSPLACENTAL;  2 MG QD TRANSMAMMARY
     Route: 064
     Dates: start: 20080301

REACTIONS (2)
  - DRUG EXPOSURE VIA BREAST MILK [None]
  - DRUG WITHDRAWAL SYNDROME NEONATAL [None]
